FAERS Safety Report 13262574 (Version 2)
Quarter: 2017Q2

REPORT INFORMATION
  Report Type: Spontaneous
  Country: US (occurrence: US)
  Receive Date: 20170223
  Receipt Date: 20170511
  Transmission Date: 20170830
  Serious: No
  Sender: FDA-Public Use
  Company Number: US-TEVA-736760ACC

PATIENT
  Sex: Female

DRUGS (2)
  1. PARAGARD T 380A [Suspect]
     Active Substance: COPPER
     Dates: start: 20170119
  2. PARAGARD T 380A [Suspect]
     Active Substance: COPPER
     Dates: start: 20170119, end: 20170119

REACTIONS (2)
  - Procedural pain [Recovered/Resolved]
  - Complication of device insertion [Recovered/Resolved]
